FAERS Safety Report 7479203-8 (Version None)
Quarter: 2011Q2

REPORT INFORMATION
  Report Type: 
  Country: None (occurrence: None)
  Receive Date: 20110513
  Receipt Date: 20110503
  Transmission Date: 20111010
  Serious: Yes (Other)
  Sender: FDA-Public Use
  Company Number: A0925469A

PATIENT
  Sex: Male

DRUGS (1)
  1. FLOVENT [Suspect]
     Indication: ASTHMA
     Dosage: 250MCG TWICE PER DAY
     Route: 065
     Dates: start: 20101201

REACTIONS (5)
  - CHOKING [None]
  - COUGH [None]
  - PRODUCT QUALITY ISSUE [None]
  - CHOKING SENSATION [None]
  - THROAT IRRITATION [None]
